APPROVED DRUG PRODUCT: LEVOFLOXACIN IN DEXTROSE 5% IN PLASTIC CONTAINER
Active Ingredient: LEVOFLOXACIN
Strength: EQ 500MG/100ML (EQ 5MG/ML)
Dosage Form/Route: INJECTABLE;INJECTION
Application: A090343 | Product #002 | TE Code: AP
Applicant: INFORLIFE SA
Approved: Jul 7, 2011 | RLD: No | RS: Yes | Type: RX